FAERS Safety Report 13173883 (Version 2)
Quarter: 2018Q1

REPORT INFORMATION
  Report Type: Spontaneous
  Country: US (occurrence: US)
  Receive Date: 20170201
  Receipt Date: 20180125
  Transmission Date: 20180508
  Serious: No
  Sender: FDA-Public Use
  Company Number: US-ABBVIE-16P-163-1557922-00

PATIENT

DRUGS (1)
  1. HUMIRA [Suspect]
     Active Substance: ADALIMUMAB
     Indication: HIDRADENITIS
     Route: 058

REACTIONS (7)
  - Wound complication [Unknown]
  - Injection site pain [Unknown]
  - Purulent discharge [Unknown]
  - Cyst [Unknown]
  - Wound haemorrhage [Unknown]
  - Mass [Unknown]
  - Furuncle [Unknown]
